FAERS Safety Report 9287713 (Version 2)
Quarter: 2013Q2

REPORT INFORMATION
  Report Type: Report from Study
  Country: JP (occurrence: JP)
  Receive Date: 20130514
  Receipt Date: 20130625
  Transmission Date: 20140414
  Serious: Yes (Other)
  Sender: FDA-Public Use
  Company Number: PHHY2010JP68896

PATIENT
  Age: 78 Year
  Sex: Female
  Weight: 44 kg

DRUGS (15)
  1. AFINITOR [Suspect]
     Indication: RENAL CELL CARCINOMA
     Dosage: 2.5 MG, QD
     Route: 048
     Dates: start: 20100825, end: 20100907
  2. AFINITOR [Suspect]
     Dosage: 5 MG, QD
     Route: 048
     Dates: start: 20100908, end: 20100914
  3. AFINITOR [Suspect]
     Dosage: 10 MG, QD
     Route: 048
     Dates: start: 20100922, end: 20100928
  4. AFINITOR [Suspect]
     Dosage: 5 MG, QD
     Route: 048
     Dates: start: 20101006, end: 20101210
  5. AFINITOR [Suspect]
     Dosage: 5 MG, QD
     Route: 048
     Dates: start: 20100309
  6. NEXAVAR [Concomitant]
     Indication: RENAL CELL CARCINOMA
     Dosage: 400 MG, UNK
     Route: 048
     Dates: start: 20100721, end: 20100804
  7. AMARYL [Concomitant]
     Dosage: 2 MG, UNK
     Route: 048
     Dates: start: 20100620, end: 20110506
  8. AMARYL [Concomitant]
     Dosage: 5 MG, UNK
     Route: 048
     Dates: start: 20110622
  9. ARICEPT [Concomitant]
     Dosage: 5 MG, UNK
     Route: 048
     Dates: start: 20091111, end: 20101012
  10. ARICEPT [Concomitant]
     Dosage: 10 MG, UNK
     Dates: start: 20101013
  11. DOGMATYL [Concomitant]
     Dosage: 50 MG, UNK
     Route: 048
     Dates: end: 20110621
  12. LANTUS [Concomitant]
     Dosage: 4 IU, UNK
     Route: 058
     Dates: start: 20100613
  13. ADALAT CR [Concomitant]
     Dosage: 20 MG, UNK
     Route: 048
     Dates: start: 20101203
  14. FERROMIA [Concomitant]
  15. MEMARY [Concomitant]

REACTIONS (3)
  - Blood glucose increased [Unknown]
  - Haemoglobin decreased [Unknown]
  - Dementia [Not Recovered/Not Resolved]
